FAERS Safety Report 7934795-7 (Version None)
Quarter: 2011Q4

REPORT INFORMATION
  Report Type: 
  Country: None (occurrence: None)
  Receive Date: 20111122
  Receipt Date: 20111115
  Transmission Date: 20120403
  Serious: Yes (Other)
  Sender: FDA-Public Use
  Company Number: GB-TEVA-309559ISR

PATIENT
  Age: 55 Year
  Sex: Female
  Weight: 63.5 kg

DRUGS (6)
  1. ASPIRIN [Concomitant]
     Route: 048
  2. LAMOTRIGINE [Concomitant]
     Route: 048
  3. METFORMIN HCL [Suspect]
     Indication: DIABETES MELLITUS
     Route: 048
     Dates: start: 20110808, end: 20110818
  4. ATORVASTATIN [Concomitant]
     Route: 048
  5. PHENOBARBITAL TAB [Concomitant]
     Route: 048
  6. TEGRETOL [Concomitant]
     Route: 048

REACTIONS (2)
  - CONVULSION [None]
  - CONDITION AGGRAVATED [None]
